FAERS Safety Report 7338249-0 (Version None)
Quarter: 2011Q1

REPORT INFORMATION
  Report Type: 
  Country: None (occurrence: None)
  Receive Date: 20110308
  Receipt Date: 20110223
  Transmission Date: 20110831
  Serious: Yes (Hospitalization)
  Sender: FDA-Public Use
  Company Number: FR-ELI_LILLY_AND_COMPANY-FR201103001047

PATIENT
  Sex: Male

DRUGS (12)
  1. NEURONTIN [Concomitant]
     Dates: end: 20090401
  2. CYMBALTA [Suspect]
     Dosage: 60 MG, UNK
     Route: 048
     Dates: start: 20090413, end: 20090813
  3. XATRAL [Concomitant]
  4. ARICEPT [Concomitant]
     Dosage: 10 MG, UNK
     Route: 048
     Dates: start: 20090413, end: 20090813
  5. TIAPRIDAL [Concomitant]
     Route: 048
     Dates: start: 20090413, end: 20090814
  6. NOZINAN [Concomitant]
     Dosage: UNK, UNKNOWN
     Dates: end: 20090401
  7. VITAMIN B-12 [Concomitant]
  8. RIVOTRIL [Concomitant]
     Dates: end: 20090401
  9. ZALDIAR [Concomitant]
     Dates: end: 20090401
  10. ZALDIAR [Concomitant]
     Dosage: 1 D/F, UNK
     Route: 048
     Dates: start: 20090728, end: 20090813
  11. LYRICA [Concomitant]
     Dosage: 75 MG, UNK
     Route: 048
     Dates: start: 20090413, end: 20090813
  12. NOZINAN [Concomitant]
     Dosage: UNK, UNKNOWN

REACTIONS (3)
  - ABNORMAL BEHAVIOUR [None]
  - FALL [None]
  - HALLUCINATION, VISUAL [None]
